FAERS Safety Report 19709951 (Version 2)
Quarter: 2021Q4

REPORT INFORMATION
  Report Type: Spontaneous
  Country: ID (occurrence: ID)
  Receive Date: 20210816
  Receipt Date: 20211102
  Transmission Date: 20220303
  Serious: Yes (Other)
  Sender: FDA-Public Use
  Company Number: ID-NOVARTISPH-NVSC2021ID177683

PATIENT
  Age: 30 Year
  Sex: Male

DRUGS (2)
  1. SECUKINUMAB [Suspect]
     Active Substance: SECUKINUMAB
     Indication: Psoriasis
     Dosage: 300 MG
     Route: 065
  2. SECUKINUMAB [Suspect]
     Active Substance: SECUKINUMAB
     Dosage: 150 MG
     Route: 065

REACTIONS (5)
  - Psoriatic arthropathy [Unknown]
  - Peripheral swelling [Unknown]
  - Cellulitis [Recovered/Resolved]
  - Inflammation [Unknown]
  - Pruritus [Unknown]
